FAERS Safety Report 9654098 (Version 2)
Quarter: 2013Q4

REPORT INFORMATION
  Report Type: Spontaneous
  Country: US (occurrence: US)
  Receive Date: 20131029
  Receipt Date: 20131127
  Transmission Date: 20140711
  Serious: Yes (Other)
  Sender: FDA-Public Use
  Company Number: US-ELI_LILLY_AND_COMPANY-US201310005525

PATIENT
  Sex: Male
  Weight: 99.32 kg

DRUGS (10)
  1. CYMBALTA [Suspect]
     Indication: DEPRESSION
     Dosage: 60 MG, UNKNOWN
     Route: 048
     Dates: start: 20070628, end: 20101223
  2. CYMBALTA [Suspect]
     Dosage: 30 MG, UNKNOWN
     Route: 048
     Dates: start: 20120105, end: 20120709
  3. NOVOLOG [Concomitant]
  4. LANTUS [Concomitant]
  5. DIOVAN [Concomitant]
  6. ASPIRIN [Concomitant]
     Dosage: 81 MG, QD
  7. XANAX [Concomitant]
     Dosage: 5 MG, EACH EVENING
  8. SIMVASTATIN [Concomitant]
  9. PRILOSEC [Concomitant]
  10. COUMADIN [Concomitant]

REACTIONS (6)
  - Gangrene [Unknown]
  - Off label use [Unknown]
  - Neuropathy peripheral [Not Recovered/Not Resolved]
  - Phantom pain [Not Recovered/Not Resolved]
  - Intentional drug misuse [Unknown]
  - Drug dispensing error [Unknown]
